FAERS Safety Report 11217516 (Version 1)
Quarter: 2015Q2

REPORT INFORMATION
  Report Type: Report from Study
  Country: US (occurrence: US)
  Receive Date: 20150625
  Receipt Date: 20150625
  Transmission Date: 20150821
  Serious: Yes (Hospitalization, Other)
  Sender: FDA-Public Use
  Company Number: US-GILEAD-2015-0160125

PATIENT
  Age: 72 Year
  Sex: Female

DRUGS (11)
  1. RECLAST [Concomitant]
     Active Substance: ZOLEDRONIC ACID
  2. LEVOTHYROXINE [Concomitant]
     Active Substance: LEVOTHYROXINE
  3. ENALAPRIL [Concomitant]
     Active Substance: ENALAPRIL
  4. XIFAXAN [Concomitant]
     Active Substance: RIFAXIMIN
  5. OMEPRAZOLE. [Concomitant]
     Active Substance: OMEPRAZOLE
  6. FUROSEMIDE. [Concomitant]
     Active Substance: FUROSEMIDE
  7. KLOR-CON [Concomitant]
     Active Substance: POTASSIUM CHLORIDE
  8. FOLIC ACID. [Concomitant]
     Active Substance: FOLIC ACID
  9. ADCIRCA [Concomitant]
     Active Substance: TADALAFIL
  10. PENTOXIFYLLINE. [Concomitant]
     Active Substance: PENTOXIFYLLINE
  11. AMBRISENTAN [Suspect]
     Active Substance: AMBRISENTAN
     Indication: PULMONARY HYPERTENSION
     Dosage: 5 MG, QD
     Route: 065
     Dates: start: 20140528

REACTIONS (1)
  - Clostridium difficile infection [Unknown]
